FAERS Safety Report 4587837-3 (Version None)
Quarter: 2005Q1

REPORT INFORMATION
  Report Type: 
  Country: None (occurrence: None)
  Receive Date: 20050125
  Receipt Date: 20040914
  Transmission Date: 20050727
  Serious: No
  Sender: FDA-Public Use
  Company Number: USA040978247

PATIENT
  Age: 62 Year
  Sex: Female
  Weight: 43 kg

DRUGS (2)
  1. FORTEO [Suspect]
     Indication: OSTEOPOROSIS
     Dosage: 20 UG DAY
     Dates: start: 20040701
  2. PREDNISONE TAB [Concomitant]

REACTIONS (5)
  - ANOREXIA [None]
  - BONE PAIN [None]
  - MUSCLE SPASMS [None]
  - PAIN [None]
  - WEIGHT DECREASED [None]
